FAERS Safety Report 5349529-2 (Version None)
Quarter: 2007Q2

REPORT INFORMATION
  Report Type: 
  Country: None (occurrence: None)
  Receive Date: 20070510
  Receipt Date: 20070102
  Transmission Date: 20071010
  Serious: No
  Sender: FDA-Public Use
  Company Number: PHEH2007US00490

PATIENT
  Sex: Male

DRUGS (3)
  1. APRESOLINE [Suspect]
  2. FORADIL /USA/ (FORMOTEROL) [Concomitant]
  3. AEROBID-M (FLUNISOLIDE, MENTHOL) [Concomitant]

REACTIONS (1)
  - INCORRECT DRUG DOSAGE FORM ADMINISTERED [None]
